FAERS Safety Report 6695818-9 (Version None)
Quarter: 2010Q2

REPORT INFORMATION
  Report Type: 
  Country: None (occurrence: None)
  Receive Date: 20100423
  Receipt Date: 20100423
  Transmission Date: 20101027
  Serious: No
  Sender: FDA-Public Use
  Company Number: None

PATIENT
  Age: 56 Year
  Sex: Male
  Weight: 70.3075 kg

DRUGS (1)
  1. FACTIVE [Suspect]
     Indication: PNEUMONIA STREPTOCOCCAL
     Dosage: ONE TABLET ONCE A DAY PO
     Route: 048
     Dates: start: 20100331, end: 20100404

REACTIONS (1)
  - TENDON RUPTURE [None]
